FAERS Safety Report 4463148-1 (Version None)
Quarter: 2004Q3

REPORT INFORMATION
  Report Type: 
  Country: None (occurrence: None)
  Receive Date: 20040928
  Receipt Date: 20040915
  Transmission Date: 20050211
  Serious: Yes (Disabling)
  Sender: FDA-Public Use
  Company Number: 2004AP04817

PATIENT
  Age: 72 Year
  Sex: Male

DRUGS (2)
  1. ATENOLOL [Suspect]
     Indication: ARRHYTHMIA
     Dosage: 50 MD DAILY
     Dates: start: 20020601
  2. MAREVAN [Concomitant]

REACTIONS (2)
  - MUSCULAR WEAKNESS [None]
  - SENSORY DISTURBANCE [None]
